FAERS Safety Report 19249266 (Version 1)
Quarter: 2021Q2

REPORT INFORMATION
  Report Type: Spontaneous
  Country: RU (occurrence: RU)
  Receive Date: 20210512
  Receipt Date: 20210512
  Transmission Date: 20210717
  Serious: Yes (Other)
  Sender: FDA-Public Use
  Company Number: RU-ASTRAZENECA-2021A407268

PATIENT
  Age: 6650 Day
  Sex: Female
  Weight: 61 kg

DRUGS (4)
  1. SELUMETINIB. [Suspect]
     Active Substance: SELUMETINIB
     Indication: NEUROFIBROMA
     Route: 048
  2. SELUMETINIB. [Suspect]
     Active Substance: SELUMETINIB
     Indication: NEUROFIBROMA
     Route: 048
     Dates: start: 20210422, end: 20210505
  3. SELUMETINIB. [Suspect]
     Active Substance: SELUMETINIB
     Indication: NEUROFIBROMATOSIS
     Route: 048
     Dates: start: 20210422, end: 20210505
  4. SELUMETINIB. [Suspect]
     Active Substance: SELUMETINIB
     Indication: NEUROFIBROMATOSIS
     Route: 048

REACTIONS (2)
  - Eyelid oedema [Unknown]
  - Dermatitis [Unknown]

NARRATIVE: CASE EVENT DATE: 20210505
